FAERS Safety Report 15491660 (Version 3)
Quarter: 2018Q4

REPORT INFORMATION
  Report Type: Report from Study
  Country: None (occurrence: US)
  Receive Date: 20181012
  Receipt Date: 20181129
  Transmission Date: 20190205
  Serious: Yes (Other)
  Sender: FDA-Public Use
  Company Number: US-ABBVIE-18K-163-2511833-00

PATIENT
  Age: 66 Year
  Sex: Male

DRUGS (5)
  1. HUMIRA [Suspect]
     Active Substance: ADALIMUMAB
     Indication: CROHN^S DISEASE
     Dosage: HUMIRA CF PEN
     Route: 058
     Dates: start: 2018
  2. HUMIRA [Suspect]
     Active Substance: ADALIMUMAB
     Indication: RHEUMATOID ARTHRITIS
  3. HUMIRA [Suspect]
     Active Substance: ADALIMUMAB
     Indication: RHEUMATOID ARTHRITIS
  4. METHOTREXATE. [Concomitant]
     Active Substance: METHOTREXATE
     Indication: RHEUMATOID ARTHRITIS
  5. HUMIRA [Suspect]
     Active Substance: ADALIMUMAB
     Indication: CROHN^S DISEASE
     Route: 058
     Dates: start: 2017

REACTIONS (9)
  - Arthralgia [Recovering/Resolving]
  - Inguinal hernia [Not Recovered/Not Resolved]
  - Injection site dryness [Unknown]
  - Injection site haemorrhage [Recovered/Resolved]
  - Injection site reaction [Unknown]
  - Injection site bruising [Recovered/Resolved]
  - Injection site pain [Unknown]
  - Inguinal hernia [Recovered/Resolved]
  - Device issue [Recovered/Resolved]

NARRATIVE: CASE EVENT DATE: 201711
